FAERS Safety Report 18160013 (Version 2)
Quarter: 2020Q3

REPORT INFORMATION
  Report Type: Spontaneous
  Country: CA (occurrence: CA)
  Receive Date: 20200818
  Receipt Date: 20200818
  Transmission Date: 20201103
  Serious: Yes (Death)
  Sender: FDA-Public Use
  Company Number: CA-ORION CORPORATION ORION PHARMA-20_00010368

PATIENT
  Age: 62 Year
  Sex: Female
  Weight: 71 kg

DRUGS (16)
  1. SINEQUAN [Suspect]
     Active Substance: DOXEPIN HYDROCHLORIDE
     Indication: AFFECTIVE DISORDER
     Route: 048
  2. LEUCOVORIN CALCIUM. [Concomitant]
     Active Substance: LEUCOVORIN CALCIUM
     Route: 042
  3. DEPO?MEDROL [Concomitant]
     Active Substance: METHYLPREDNISOLONE ACETATE
     Route: 014
  4. LITHIUM. [Concomitant]
     Active Substance: LITHIUM
     Route: 065
  5. NYSTATIN. [Concomitant]
     Active Substance: NYSTATIN
     Route: 065
  6. CLONAZEPAM. [Concomitant]
     Active Substance: CLONAZEPAM
     Route: 065
  7. AMOXICILLIN. [Concomitant]
     Active Substance: AMOXICILLIN
     Route: 065
  8. COLCHICINE. [Concomitant]
     Active Substance: COLCHICINE
     Route: 065
  9. PREGABALIN. [Concomitant]
     Active Substance: PREGABALIN
     Route: 065
  10. METHOTREXATE. [Concomitant]
     Active Substance: METHOTREXATE
     Route: 065
  11. METHOTRIMEPRAZINE [LEVOMEPROMAZINE] [Concomitant]
     Active Substance: LEVOMEPROMAZINE
     Route: 065
  12. TECTA [Concomitant]
     Active Substance: PANTOPRAZOLE MAGNESIUM
     Route: 065
  13. METHOTREXATE (TRADE NAME UNKNOWN) [Suspect]
     Active Substance: METHOTREXATE
     Indication: RHEUMATOID ARTHRITIS
     Route: 048
  14. LEVOTHYROXINE. [Concomitant]
     Active Substance: LEVOTHYROXINE
     Route: 065
  15. INDERAL LA [Concomitant]
     Active Substance: PROPRANOLOL HYDROCHLORIDE
     Route: 065
  16. NYSTATIN. [Concomitant]
     Active Substance: NYSTATIN
     Dosage: UNK

REACTIONS (5)
  - Neutropenia [Fatal]
  - Thrombocytopenia [Fatal]
  - Enterocolitis [Fatal]
  - Multiple organ dysfunction syndrome [Fatal]
  - Pancytopenia [Fatal]
